FAERS Safety Report 20544798 (Version 2)
Quarter: 2022Q1

REPORT INFORMATION
  Report Type: Spontaneous
  Country: CN (occurrence: CN)
  Receive Date: 20220303
  Receipt Date: 20220321
  Transmission Date: 20220423
  Serious: Yes (Other)
  Sender: FDA-Public Use
  Company Number: CN-SA-2022SA065742

PATIENT
  Age: 33 Year
  Sex: Male

DRUGS (3)
  1. HARNAL [Interacting]
     Active Substance: TAMSULOSIN HYDROCHLORIDE
     Indication: Benign prostatic hyperplasia
     Dosage: 0.2 MG, QD
     Route: 048
     Dates: start: 20220211
  2. HARNAL [Interacting]
     Active Substance: TAMSULOSIN HYDROCHLORIDE
     Indication: Prostatitis
  3. LEVOFLOXACIN HYDROCHLORIDE [Concomitant]
     Active Substance: LEVOFLOXACIN HYDROCHLORIDE
     Indication: Product used for unknown indication

REACTIONS (4)
  - Urinary retention [Recovering/Resolving]
  - Drug ineffective [Unknown]
  - Discomfort [Recovering/Resolving]
  - Off label use [Unknown]

NARRATIVE: CASE EVENT DATE: 20220211
